FAERS Safety Report 8333365-9 (Version None)
Quarter: 2012Q2

REPORT INFORMATION
  Report Type: 
  Country: None (occurrence: None)
  Receive Date: 20120503
  Receipt Date: 20120424
  Transmission Date: 20120825
  Serious: Yes (Disabling)
  Sender: FDA-Public Use
  Company Number: FR-ASTRAZENECA-2011SE74759

PATIENT
  Sex: Female

DRUGS (7)
  1. TRANSILANE [Concomitant]
  2. ASPIRIN [Concomitant]
  3. OMEPRAZOLE [Concomitant]
  4. BROMAZEPAM [Concomitant]
  5. FLECAINIDE ACETATE [Concomitant]
  6. ATACAND [Suspect]
     Indication: HYPERTENSION
     Route: 048
     Dates: start: 20090101
  7. LEVOTHYROXINE SODIUM [Concomitant]

REACTIONS (2)
  - OSTEOARTHRITIS [None]
  - BACK PAIN [None]
